FAERS Safety Report 5144285-5 (Version None)
Quarter: 2006Q4

REPORT INFORMATION
  Report Type: 
  Country: None (occurrence: None)
  Receive Date: 20061030
  Receipt Date: 20061017
  Transmission Date: 20070319
  Serious: Yes (Death, Hospitalization)
  Sender: FDA-Public Use
  Company Number: 2006001018

PATIENT
  Age: 66 Year
  Sex: Female
  Weight: 38 kg

DRUGS (15)
  1. ERLOTINIB  (TABLETS) [Suspect]
     Indication: NON-SMALL CELL LUNG CANCER
     Dosage: SEE IMAGE
     Route: 048
     Dates: start: 20060306, end: 20060405
  2. ERLOTINIB  (TABLETS) [Suspect]
     Indication: NON-SMALL CELL LUNG CANCER
     Dosage: SEE IMAGE
     Route: 048
     Dates: start: 20060309, end: 20060430
  3. ADVIL [Concomitant]
  4. AEROBID [Concomitant]
  5. MUPIROCIN (MUPIROCIN) [Concomitant]
  6. COMBIVENT [Concomitant]
  7. PIMECROLIMUS [Concomitant]
  8. MULTIVITAMIN [Concomitant]
  9. LEVOFLOXACIN [Concomitant]
  10. DEXTROSE [Concomitant]
  11. FAMOTIDINE [Concomitant]
  12. FUROSEMIDE [Concomitant]
  13. MAGNESIUM (MAGNESIUM) [Concomitant]
  14. VALTREX [Concomitant]
  15. ACYCLOVIR [Concomitant]

REACTIONS (41)
  - ACTIVATED PARTIAL THROMBOPLASTIN TIME PROLONGED [None]
  - ACUTE HEPATIC FAILURE [None]
  - ALCOHOL USE [None]
  - ANURIA [None]
  - ASCITES [None]
  - AUTOIMMUNE DISORDER [None]
  - AZOTAEMIA [None]
  - BILIARY CYST [None]
  - BLOOD ALBUMIN DECREASED [None]
  - BLOOD CREATININE INCREASED [None]
  - BLOOD GLUCOSE DECREASED [None]
  - CHOLELITHIASIS [None]
  - DECREASED APPETITE [None]
  - DIARRHOEA [None]
  - DISEASE PROGRESSION [None]
  - DRUG TOXICITY [None]
  - ENCEPHALOPATHY [None]
  - FATIGUE [None]
  - FLATULENCE [None]
  - GASTROINTESTINAL DISORDER [None]
  - GENERAL PHYSICAL HEALTH DETERIORATION [None]
  - GENERALISED OEDEMA [None]
  - HAEMOCHROMATOSIS [None]
  - HAEMORRHAGE [None]
  - HAMARTOMA [None]
  - HEPATIC NECROSIS [None]
  - HEPATITIS [None]
  - HEPATORENAL SYNDROME [None]
  - INFLAMMATION [None]
  - INTERNATIONAL NORMALISED RATIO INCREASED [None]
  - LETHARGY [None]
  - MENTAL STATUS CHANGES [None]
  - METASTASIS [None]
  - PLEURAL EFFUSION [None]
  - PROTHROMBIN TIME PROLONGED [None]
  - PRURITUS [None]
  - RENAL FAILURE [None]
  - SCAN ABDOMEN ABNORMAL [None]
  - SKIN LESION [None]
  - SKIN TOXICITY [None]
  - URINE OUTPUT DECREASED [None]
